FAERS Safety Report 12153880 (Version 1)
Quarter: 2016Q1

REPORT INFORMATION
  Report Type: Spontaneous
  Country: US (occurrence: US)
  Receive Date: 20160307
  Receipt Date: 20160307
  Transmission Date: 20160526
  Serious: No
  Sender: FDA-Public Use
  Company Number: US-HORIZON-PEN-0081-2016

PATIENT
  Age: 67 Year
  Sex: Female

DRUGS (1)
  1. PENNSAID [Suspect]
     Active Substance: DICLOFENAC SODIUM
     Indication: OSTEOARTHRITIS
     Dosage: 1 PUMP TWICE DAILY
     Dates: start: 20150415

REACTIONS (2)
  - Off label use [Recovered/Resolved]
  - Intentional product misuse [Recovered/Resolved]
